FAERS Safety Report 4320672-X (Version None)
Quarter: 2004Q1

REPORT INFORMATION
  Report Type: 
  Country: None (occurrence: None)
  Receive Date: 20040315
  Receipt Date: 20030723
  Transmission Date: 20041129
  Serious: Yes (Death, Other)
  Sender: FDA-Public Use
  Company Number: USA030639840

PATIENT
  Age: 56 Year
  Sex: Male
  Weight: 100 kg

DRUGS (6)
  1. GEMZAR [Suspect]
     Indication: GASTRIC CANCER
     Dosage: 1000 MG/M2/OTHER
     Route: 050
     Dates: start: 20030520, end: 20030612
  2. CPT-11 [Concomitant]
  3. OXYCONTIN [Concomitant]
  4. OXYCODONE HCL [Concomitant]
  5. PROTONIX [Concomitant]
  6. TOPROL-XL [Concomitant]

REACTIONS (8)
  - ABDOMINAL PAIN UPPER [None]
  - FATIGUE [None]
  - HAEMOLYTIC URAEMIC SYNDROME [None]
  - MALIGNANT NEOPLASM PROGRESSION [None]
  - MICROANGIOPATHIC HAEMOLYTIC ANAEMIA [None]
  - RENAL FAILURE [None]
  - THROMBOCYTOPENIA [None]
  - UNEVALUABLE EVENT [None]
